FAERS Safety Report 14582604 (Version 2)
Quarter: 2018Q1

REPORT INFORMATION
  Report Type: Spontaneous
  Country: DE (occurrence: DE)
  Receive Date: 20180228
  Receipt Date: 20180307
  Transmission Date: 20180509
  Serious: Yes (Hospitalization)
  Sender: FDA-Public Use
  Company Number: DE-TEVA-2018-DE-860320

PATIENT
  Age: 57 Year
  Sex: Male
  Weight: 101 kg

DRUGS (3)
  1. STAMARIL [Suspect]
     Active Substance: YELLOW FEVER VIRUS STRAIN 17D-204 LIVE ANTIGEN
     Indication: PROPHYLAXIS
     Route: 058
     Dates: start: 20160428, end: 20160428
  2. DUKORAL [Suspect]
     Active Substance: CHOLERA VACCINE
     Indication: PROPHYLAXIS
     Route: 048
     Dates: start: 201604, end: 201604
  3. CIPROFLOXACIN HYDROCHLORIDE. [Suspect]
     Active Substance: CIPROFLOXACIN HYDROCHLORIDE
     Indication: PRODUCT USED FOR UNKNOWN INDICATION
     Route: 065

REACTIONS (24)
  - Disturbance in attention [Not Recovered/Not Resolved]
  - Rash [Recovered/Resolved]
  - Memory impairment [Unknown]
  - Chills [Unknown]
  - Yellow fever [Recovered/Resolved]
  - Malaise [Recovered/Resolved]
  - Sneezing [Not Recovered/Not Resolved]
  - Transaminases increased [Recovered/Resolved]
  - Headache [Recovered/Resolved]
  - Impaired work ability [Unknown]
  - Cough [Not Recovered/Not Resolved]
  - Pyrexia [Recovered/Resolved]
  - Dyslexia [Unknown]
  - Decreased appetite [Unknown]
  - Vertigo positional [Unknown]
  - Sleep disorder [Unknown]
  - Dehydration [Recovered/Resolved]
  - Fatigue [Unknown]
  - Weight decreased [Unknown]
  - Night sweats [Not Recovered/Not Resolved]
  - Vertigo [Unknown]
  - Yellow fever vaccine-associated neurotropic disease [Unknown]
  - Paraesthesia [Unknown]
  - Yellow fever vaccine-associated viscerotropic disease [Unknown]

NARRATIVE: CASE EVENT DATE: 20160503
